FAERS Safety Report 7679461-0 (Version None)
Quarter: 2011Q3

REPORT INFORMATION
  Report Type: 
  Country: None (occurrence: None)
  Receive Date: 20110812
  Receipt Date: 20110812
  Transmission Date: 20111222
  Serious: Yes (Hospitalization)
  Sender: FDA-Public Use
  Company Number: None

PATIENT
  Sex: Female
  Weight: 56.8 kg

DRUGS (1)
  1. LISINOPRIL [Suspect]
     Indication: HYPERTENSION
     Dosage: UNKNOWN
     Route: 048

REACTIONS (11)
  - HALLUCINATION [None]
  - CONFUSIONAL STATE [None]
  - SWELLING FACE [None]
  - ANGIOEDEMA [None]
  - DELIRIUM [None]
  - SWOLLEN TONGUE [None]
  - OBSTRUCTIVE AIRWAYS DISORDER [None]
  - RESPIRATORY FAILURE [None]
  - SPEECH DISORDER [None]
  - RESPIRATORY DISTRESS [None]
  - LEUKOCYTOSIS [None]
